FAERS Safety Report 9255442 (Version 2)
Quarter: 2013Q2

REPORT INFORMATION
  Report Type: Spontaneous
  Country: GB (occurrence: GB)
  Receive Date: 20130425
  Receipt Date: 20130501
  Transmission Date: 20140414
  Serious: Yes (Hospitalization)
  Sender: FDA-Public Use
  Company Number: GB-ASTRAZENECA-2013SE26309

PATIENT
  Age: 61 Year
  Sex: Female

DRUGS (5)
  1. OMEPRAZOLE [Suspect]
     Indication: PRODUCT USED FOR UNKNOWN INDICATION
     Route: 048
  2. OMEPRAZOLE [Suspect]
     Indication: PRODUCT USED FOR UNKNOWN INDICATION
     Route: 048
  3. LANSOPRAZOLE [Suspect]
     Indication: DYSPEPSIA
     Route: 065
     Dates: start: 20130213, end: 20130306
  4. LANSOPRAZOLE [Suspect]
     Indication: DYSPEPSIA
     Route: 065
     Dates: start: 20130213, end: 20130306
  5. IBUPROFEN [Concomitant]
     Indication: MUSCULOSKELETAL PAIN

REACTIONS (6)
  - Melaena [Recovered/Resolved]
  - Fatigue [Unknown]
  - Gastroduodenitis [Unknown]
  - Abdominal pain lower [Unknown]
  - Rash [Unknown]
  - Constipation [Unknown]
